FAERS Safety Report 5514699-X (Version None)
Quarter: 2007Q4

REPORT INFORMATION
  Report Type: 
  Country: None (occurrence: None)
  Receive Date: 20071113
  Receipt Date: 20071107
  Transmission Date: 20080405
  Serious: Yes (Other)
  Sender: FDA-Public Use
  Company Number: TR-ABBOTT-07P-161-0419198-00

PATIENT
  Age: 10 Year
  Sex: Female

DRUGS (6)
  1. VALPROIC ACID [Suspect]
     Indication: BIPOLAR DISORDER
     Dosage: 20 MG/KG/DAY, DIVIDED INTO 3 TIMES DAILY
  2. VALPROIC ACID [Suspect]
  3. METHYLPHENIDATE HCL [Interacting]
     Indication: ATTENTION DEFICIT/HYPERACTIVITY DISORDER
     Dosage: 30 MG/DAY, DIVIDED INTO 3 TIMES DAILY
  4. METHYLPHENIDATE HCL [Interacting]
  5. IMIPRAMINE [Interacting]
     Indication: DEPRESSED MOOD
  6. IMIPRAMINE [Interacting]
     Indication: AGGRESSION

REACTIONS (2)
  - DRUG INTERACTION [None]
  - OCULOGYRIC CRISIS [None]
